FAERS Safety Report 7659989-X (Version None)
Quarter: 2011Q3

REPORT INFORMATION
  Report Type: 
  Country: None (occurrence: None)
  Receive Date: 20110805
  Receipt Date: 20110124
  Transmission Date: 20111222
  Serious: No
  Sender: FDA-Public Use
  Company Number: US-BAYER-2011-008840

PATIENT
  Age: 11 Year
  Sex: Female
  Weight: 51.701 kg

DRUGS (2)
  1. ULTRAVIST 150 [Suspect]
     Indication: COMPUTERISED TOMOGRAM ABDOMEN
     Dosage: 90 ML, UNK
     Route: 042
     Dates: start: 20110124, end: 20110124
  2. GASTROGRAFIN [Concomitant]
     Indication: COMPUTERISED TOMOGRAM ABDOMEN
     Dosage: UNK
     Dates: start: 20110124, end: 20110124

REACTIONS (3)
  - COUGH [None]
  - NAUSEA [None]
  - VOMITING [None]
